FAERS Safety Report 13190299 (Version 2)
Quarter: 2017Q2

REPORT INFORMATION
  Report Type: Spontaneous
  Country: US (occurrence: US)
  Receive Date: 20170206
  Receipt Date: 20170412
  Transmission Date: 20170830
  Serious: Yes (Death)
  Sender: FDA-Public Use
  Company Number: US-CELGENEUS-USA-2017020849

PATIENT
  Age: 40 Year
  Sex: Female

DRUGS (4)
  1. HALAVEN [Concomitant]
     Active Substance: ERIBULIN MESYLATE
     Indication: BREAST CANCER
     Dosage: 2.1 MILLIGRAM
     Route: 065
     Dates: start: 20160803, end: 20160831
  2. ZOMETA [Concomitant]
     Active Substance: ZOLEDRONIC ACID
     Indication: METASTASES TO BONE
     Dosage: 4 MILLIGRAM
     Route: 065
     Dates: start: 20160518, end: 20160907
  3. ABRAXANE [Suspect]
     Active Substance: PACLITAXEL
     Indication: BREAST CANCER
     Dosage: 148 MILLIGRAM
     Route: 041
     Dates: start: 20160516, end: 20160727
  4. PROCRIT [Concomitant]
     Active Substance: ERYTHROPOIETIN
     Indication: ANAEMIA
     Route: 065
     Dates: start: 20160706, end: 20160807

REACTIONS (1)
  - Death [Fatal]

NARRATIVE: CASE EVENT DATE: 20161105
